FAERS Safety Report 7510743-9 (Version None)
Quarter: 2011Q2

REPORT INFORMATION
  Report Type: 
  Country: None (occurrence: None)
  Receive Date: 20110530
  Receipt Date: 20110517
  Transmission Date: 20111010
  Serious: Yes (Other)
  Sender: FDA-Public Use
  Company Number: PHHY2011NL42500

PATIENT
  Sex: Female

DRUGS (5)
  1. CHEMOTHERAPEUTICS NOS [Concomitant]
  2. ZOMETA [Suspect]
     Dosage: 4 MG PER 28 DAYS
  3. ZOMETA [Suspect]
     Dosage: 4 MG PER 28 DAYS
     Route: 042
     Dates: start: 20110418
  4. ZOMETA [Suspect]
     Indication: BREAST CANCER
     Dosage: 4 MG PER 28 DAYS
     Route: 042
     Dates: start: 20091204
  5. ZOMETA [Suspect]
     Dosage: 4 MG PER 28 DAYS
     Route: 042
     Dates: start: 20110517

REACTIONS (4)
  - TUMOUR ASSOCIATED FEVER [None]
  - PYREXIA [None]
  - BACK PAIN [None]
  - GENERAL PHYSICAL HEALTH DETERIORATION [None]
